FAERS Safety Report 8993452 (Version 1)
Quarter: 2013Q1

REPORT INFORMATION
  Report Type: Spontaneous
  Country: GB (occurrence: GB)
  Receive Date: 20130102
  Receipt Date: 20130102
  Transmission Date: 20140127
  Serious: Yes (Other)
  Sender: FDA-Public Use
  Company Number: GB-TEVA-378218ISR

PATIENT
  Age: 76 Year
  Sex: Male

DRUGS (4)
  1. ATENOLOL [Suspect]
     Indication: HYPERTENSION
     Dosage: 50 MILLIGRAM DAILY;
  2. ACE INHIBITOR NOS [Concomitant]
  3. DIURETIC [Concomitant]
  4. CLOPIDOGREL [Concomitant]

REACTIONS (2)
  - Cerebrovascular accident [Recovering/Resolving]
  - Central nervous system lesion [Recovering/Resolving]
